FAERS Safety Report 18569185 (Version 1)
Quarter: 2020Q4

REPORT INFORMATION
  Report Type: Spontaneous
  Country: US (occurrence: US)
  Receive Date: 20201202
  Receipt Date: 20201202
  Transmission Date: 20210114
  Serious: No
  Sender: FDA-Public Use
  Company Number: None

PATIENT
  Age: 43 Year
  Sex: Female
  Weight: 68.85 kg

DRUGS (2)
  1. NITROFURANTOIN. [Suspect]
     Active Substance: NITROFURANTOIN
     Indication: URINARY TRACT INFECTION
     Route: 048
     Dates: start: 20201025, end: 20201027
  2. BUPROPION XL [Concomitant]
     Active Substance: BUPROPION

REACTIONS (10)
  - Discomfort [None]
  - Chills [None]
  - Lethargy [None]
  - Pain of skin [None]
  - Pain [None]
  - Headache [None]
  - Neck pain [None]
  - Insomnia [None]
  - Tremor [None]
  - Pain in extremity [None]

NARRATIVE: CASE EVENT DATE: 20201026
